FAERS Safety Report 8554190-X (Version None)
Quarter: 2012Q3

REPORT INFORMATION
  Report Type: 
  Country: None (occurrence: None)
  Receive Date: 20120731
  Receipt Date: 20120718
  Transmission Date: 20120928
  Serious: Yes (Other)
  Sender: FDA-Public Use
  Company Number: US-ELI_LILLY_AND_COMPANY-US201207006329

PATIENT
  Sex: Female

DRUGS (2)
  1. HUMALOG [Suspect]
     Dosage: 5 U, TID
  2. HUMALOG [Suspect]
     Indication: DIABETES MELLITUS
     Dosage: 5 U, TID

REACTIONS (3)
  - CATARACT [None]
  - INCORRECT DOSE ADMINISTERED BY DEVICE [None]
  - GLYCOSYLATED HAEMOGLOBIN INCREASED [None]
